FAERS Safety Report 8125518-X (Version None)
Quarter: 2012Q1

REPORT INFORMATION
  Report Type: 
  Country: None (occurrence: None)
  Receive Date: 20120209
  Receipt Date: 20120126
  Transmission Date: 20120608
  Serious: Yes (Other)
  Sender: FDA-Public Use
  Company Number: PHHY2011BR113581

PATIENT
  Sex: Female

DRUGS (20)
  1. ULTRACET [Suspect]
     Indication: PAIN
  2. PRANDIN [Concomitant]
     Indication: BLOOD GLUCOSE INCREASED
     Dosage: 1 MG, BID
  3. ALPRAZOLAM [Concomitant]
     Indication: DEPRESSION
     Dosage: 2 TIMES A DAY
  4. ONE TOUCH ULTRA [Concomitant]
  5. AMITRIPTYLINE HCL [Suspect]
     Dosage: 25 MG, QD
  6. TIZANIDINE HCL [Concomitant]
     Indication: ANALGESIC THERAPY
     Dosage: 2 MG, UNK
  7. DUSPATALIN [Concomitant]
     Indication: CROHN'S DISEASE
     Dosage: 200 MG, BID
  8. DAFLON (DIOSMIN/HESPERIDIN) [Concomitant]
     Indication: BLOOD PRESSURE
     Dosage: 500 MG, BID
  9. MESALAMINE [Concomitant]
     Indication: CROHN'S DISEASE
     Dosage: 800 MG, BID
  10. MESALAMINE [Concomitant]
     Indication: CROHN'S DISEASE
     Dosage: 800 MG
  11. CLONAZEPAM [Concomitant]
     Indication: DEPRESSION
     Dosage: 2 MG, UNK
  12. DICLOFENAC SODIUM [Suspect]
     Dosage: 2 DF (2 TABLETS A DAY)
  13. TOPIRAMATE [Concomitant]
     Dosage: 100 MG, (01 TABLET AT NIGHT)
     Dates: start: 20110101
  14. OTILONIUM BROMIDE [Concomitant]
     Indication: CROHN'S DISEASE
     Dosage: UNK
  15. NIMESULIDE BETA-CYCLODEXTRINE [Concomitant]
     Indication: ANKYLOSING SPONDYLITIS
     Dosage: 2 TIMES A DAY
  16. ATACAND [Concomitant]
     Indication: HYPERTENSION
     Dosage: 1.5 DF, DAILY
     Route: 048
  17. CORTISONE ACETATE [Suspect]
  18. IMOSEC [Concomitant]
     Indication: DIARRHOEA
     Dosage: TWO TIMES DAILY
  19. DICLOFENAC SODIUM [Suspect]
     Indication: PAIN
     Dosage: 2 DF (2 TABLETS A DAY)
     Route: 048
     Dates: start: 20080101
  20. METHOTREXATE [Concomitant]
     Indication: ANKYLOSING SPONDYLITIS
     Dosage: 2.5 %, UNK

REACTIONS (9)
  - SKIN IRRITATION [None]
  - THROMBOSIS [None]
  - TONGUE BLISTERING [None]
  - EXPIRED DRUG ADMINISTERED [None]
  - CHILLS [None]
  - WEIGHT INCREASED [None]
  - INSOMNIA [None]
  - LEUKOPENIA [None]
  - PYREXIA [None]
